FAERS Safety Report 19823869 (Version 1)
Quarter: 2021Q3

REPORT INFORMATION
  Report Type: Spontaneous
  Country: US (occurrence: GE)
  Receive Date: 20210913
  Receipt Date: 20210913
  Transmission Date: 20211014
  Serious: Yes (Hospitalization, Other)
  Sender: FDA-Public Use
  Company Number: US-GLAXOSMITHKLINE-GECH2021GSK061294

PATIENT
  Age: 60 Year
  Sex: Male

DRUGS (1)
  1. GOODYS [Suspect]
     Active Substance: ACETAMINOPHEN\ASPIRIN\CAFFEINE
     Indication: HEADACHE
     Dosage: 3 PACKETS

REACTIONS (2)
  - Eosinophilia [Recovered/Resolved]
  - Acute kidney injury [Unknown]
